FAERS Safety Report 6599205-3 (Version None)
Quarter: 2010Q1

REPORT INFORMATION
  Report Type: 
  Country: None (occurrence: None)
  Receive Date: 20100224
  Receipt Date: 20100210
  Transmission Date: 20100710
  Serious: Yes (Hospitalization, Other)
  Sender: FDA-Public Use
  Company Number: PHHY2009GB27318

PATIENT
  Sex: Female

DRUGS (3)
  1. EXJADE [Suspect]
     Indication: MYELODYSPLASTIC SYNDROME
     Dosage: 1000 MG DAILY
     Route: 048
     Dates: start: 20081010
  2. EXJADE [Suspect]
     Indication: IRON OVERLOAD
  3. CHEMOTHERAPEUTICS NOS [Concomitant]
     Indication: MYELODYSPLASTIC SYNDROME
     Dosage: UNK

REACTIONS (9)
  - BODY TEMPERATURE INCREASED [None]
  - DIARRHOEA [None]
  - FALL [None]
  - INFECTION [None]
  - JOINT SWELLING [None]
  - NEUTROPENIA [None]
  - OEDEMA PERIPHERAL [None]
  - PYREXIA [None]
  - URINARY TRACT INFECTION [None]
